FAERS Safety Report 7227153-4 (Version None)
Quarter: 2011Q1

REPORT INFORMATION
  Report Type: 
  Country: None (occurrence: None)
  Receive Date: 20110114
  Receipt Date: 20110111
  Transmission Date: 20110831
  Serious: Yes (Hospitalization)
  Sender: FDA-Public Use
  Company Number: FR-ROCHE-752757

PATIENT
  Sex: Female

DRUGS (9)
  1. NORSET [Concomitant]
     Dosage: DRUG REPORTED: NORSET 15
  2. RISPERDAL [Suspect]
     Dosage: DOSE: 1/2 DOSE IN THE MORNING AND 1 DOSE IN THE EVENING
     Route: 048
     Dates: end: 20101105
  3. REMINYL [Concomitant]
     Dosage: DRUG: REMINYL LP
  4. RIVOTRIL [Suspect]
     Dosage: REDUCED DOSE
     Route: 048
  5. REMINYL [Concomitant]
  6. SERESTA [Concomitant]
  7. RIVOTRIL [Suspect]
     Dosage: 5 SYSTEATIC DROPS AT BEDTIME AND 5 DROPS IN THE DAY IF AGITATION
     Route: 048
  8. SERESTA [Concomitant]
     Dosage: DRUG REPORTED: SERESTA 10
  9. RIVOTRIL [Suspect]
     Dosage: STRENGTH: 2.5 MG/ML
     Route: 048

REACTIONS (4)
  - APATHY [None]
  - CONSTIPATION [None]
  - ABNORMAL BEHAVIOUR [None]
  - FATIGUE [None]
